FAERS Safety Report 18990248 (Version 1)
Quarter: 2021Q1

REPORT INFORMATION
  Report Type: Spontaneous
  Country: EC (occurrence: EC)
  Receive Date: 20210310
  Receipt Date: 20210310
  Transmission Date: 20210420
  Serious: Yes (Other)
  Sender: FDA-Public Use
  Company Number: EC-TEVA-2021-EC-1887605

PATIENT
  Age: 4 Decade
  Sex: Female

DRUGS (2)
  1. PREDNISONE. [Suspect]
     Active Substance: PREDNISONE
     Indication: PLASMA CELL MASTITIS
     Dosage: 10 MILLIGRAM DAILY; INITIAL AND TAPERING DOSAGES NOT STATED
     Route: 065
     Dates: start: 2015
  2. METHOTREXATE. [Suspect]
     Active Substance: METHOTREXATE
     Indication: PLASMA CELL MASTITIS
     Route: 065
     Dates: start: 2015, end: 2016

REACTIONS (10)
  - Drug ineffective [Unknown]
  - Xerophthalmia [Unknown]
  - Abdominal pain upper [Unknown]
  - Pain [Unknown]
  - Nausea [Unknown]
  - Xerosis [Unknown]
  - Cough [Unknown]
  - Weight increased [Unknown]
  - Vomiting [Unknown]
  - Odynophagia [Unknown]
